FAERS Safety Report 4950877-6 (Version None)
Quarter: 2006Q1

REPORT INFORMATION
  Report Type: 
  Country: None (occurrence: None)
  Receive Date: 20060315
  Receipt Date: 20060227
  Transmission Date: 20060701
  Serious: Yes (Other)
  Sender: FDA-Public Use
  Company Number: S06-GER-01017-01

PATIENT
  Age: 29 Year
  Sex: Female

DRUGS (1)
  1. CIPRALEX (ESCITALOPRAM) [Suspect]
     Dosage: 20 MG DAILY PO
     Route: 048
     Dates: start: 20030101

REACTIONS (5)
  - CAESAREAN SECTION [None]
  - CERVIX DISORDER [None]
  - DRUG EXPOSURE DURING PREGNANCY [None]
  - GESTATIONAL DIABETES [None]
  - PREMATURE LABOUR [None]
